FAERS Safety Report 23842842 (Version 1)
Quarter: 2024Q2

REPORT INFORMATION
  Report Type: Report from Study
  Country: US (occurrence: US)
  Receive Date: 20240510
  Receipt Date: 20240510
  Transmission Date: 20240716
  Serious: Yes (Other)
  Sender: FDA-Public Use
  Company Number: US-JNJFOC-20240503365

PATIENT

DRUGS (1)
  1. TALVEY [Suspect]
     Active Substance: TALQUETAMAB-TGVS
     Indication: Product used for unknown indication
     Route: 065

REACTIONS (9)
  - Neutropenia [Unknown]
  - Cytokine release syndrome [Unknown]
  - Nasopharyngitis [Unknown]
  - Cough [Unknown]
  - Decreased appetite [Unknown]
  - Nail disorder [Unknown]
  - Skin exfoliation [Unknown]
  - Pyrexia [Unknown]
  - Nail infection [Unknown]
